FAERS Safety Report 5065169-7 (Version None)
Quarter: 2006Q3

REPORT INFORMATION
  Report Type: 
  Country: None (occurrence: None)
  Receive Date: 20060706
  Receipt Date: 20060114
  Transmission Date: 20061208
  Serious: Yes (Other)
  Sender: FDA-Public Use
  Company Number: 24059

PATIENT
  Sex: Male

DRUGS (2)
  1. MIDAZOLAM HCL [Suspect]
     Indication: DIVERTICULITIS
     Dosage: 1MG/IV
     Route: 042
     Dates: start: 20051213
  2. DEMEROL 75MG/IV [Concomitant]

REACTIONS (4)
  - HYPERHIDROSIS [None]
  - NAUSEA [None]
  - SKIN DISCOLOURATION [None]
  - VOMITING [None]
